FAERS Safety Report 5368829-3 (Version None)
Quarter: 2007Q2

REPORT INFORMATION
  Report Type: 
  Country: None (occurrence: None)
  Receive Date: 20070625
  Receipt Date: 20070613
  Transmission Date: 20071010
  Serious: Yes (Congenital Anomaly)
  Sender: FDA-Public Use
  Company Number: IS-ELI_LILLY_AND_COMPANY-IS200609002284

PATIENT

DRUGS (4)
  1. STRATTERA [Suspect]
     Indication: ATTENTION DEFICIT/HYPERACTIVITY DISORDER
     Route: 064
  2. STRATTERA [Suspect]
     Dosage: UNK, UNKNOWN
     Route: 064
  3. PRIMAZOL [Concomitant]
     Route: 064
  4. DIFLUCAN [Concomitant]
     Dosage: UNK, UNK
     Route: 064

REACTIONS (2)
  - CLEFT PALATE [None]
  - DRUG EXPOSURE DURING PREGNANCY [None]
